FAERS Safety Report 20012662 (Version 2)
Quarter: 2021Q4

REPORT INFORMATION
  Report Type: Spontaneous
  Country: US (occurrence: US)
  Receive Date: 20211029
  Receipt Date: 20211108
  Transmission Date: 20220304
  Serious: No
  Sender: FDA-Public Use
  Company Number: US-APOTEX-2021AP043630

PATIENT
  Sex: Female

DRUGS (2)
  1. OFLOXACIN OTIC [Suspect]
     Active Substance: OFLOXACIN
     Indication: Otitis media
     Dosage: 2 GTT DROPS; 1 DROP IN EACH EAR
     Route: 065
     Dates: start: 202109, end: 202109
  2. OFLOXACIN OTIC [Suspect]
     Active Substance: OFLOXACIN
     Dosage: 10 GTT DROPS, QD (10 DROPS IN EACH EAR)
     Route: 065

REACTIONS (7)
  - Ear infection [Recovered/Resolved]
  - Ear swelling [Recovered/Resolved]
  - Oropharyngeal pain [Recovered/Resolved]
  - Ear congestion [Recovered/Resolved]
  - Chest pain [Recovered/Resolved]
  - Ear pain [Recovered/Resolved]
  - Drug ineffective [Unknown]

NARRATIVE: CASE EVENT DATE: 20210901
